FAERS Safety Report 7056504-9 (Version None)
Quarter: 2010Q4

REPORT INFORMATION
  Report Type: 
  Country: None (occurrence: None)
  Receive Date: 20101021
  Receipt Date: 20101011
  Transmission Date: 20110411
  Serious: Yes (Other)
  Sender: FDA-Public Use
  Company Number: GB-PFIZER INC-2010127261

PATIENT
  Age: 62 Year
  Sex: Male

DRUGS (11)
  1. LYRICA [Suspect]
     Dosage: 75 MG, UNK
     Route: 048
     Dates: start: 20100816, end: 20100917
  2. ACETYLSALICYLIC ACID [Concomitant]
     Route: 048
  3. BISOPROLOL [Concomitant]
     Route: 048
  4. CLOPIDOGREL [Concomitant]
     Route: 048
  5. ACETAMINOPHEN AND CODEINE PHOSPHATE [Concomitant]
     Route: 048
  6. GLICLAZIDE [Concomitant]
     Route: 048
  7. METFORMIN [Concomitant]
     Route: 048
  8. OMEPRAZOLE [Concomitant]
     Route: 048
  9. ORAMORPH SR [Concomitant]
     Dosage: UNK
     Route: 048
  10. RAMIPRIL [Concomitant]
     Route: 048
  11. THIAMINE [Concomitant]
     Route: 048

REACTIONS (1)
  - CARDIAC ARREST [None]
